FAERS Safety Report 6647303-8 (Version None)
Quarter: 2010Q1

REPORT INFORMATION
  Report Type: 
  Country: None (occurrence: None)
  Receive Date: 20100323
  Receipt Date: 20100312
  Transmission Date: 20100710
  Serious: Yes (Other)
  Sender: FDA-Public Use
  Company Number: B0626840A

PATIENT
  Sex: Male

DRUGS (7)
  1. VALTREX [Suspect]
     Indication: HERPES ZOSTER
     Dosage: 500MG PER DAY
     Route: 048
     Dates: start: 20100113
  2. FAMOTIDINE [Concomitant]
     Indication: GASTRIC ULCER
     Dosage: 10MG PER DAY
     Route: 048
     Dates: start: 20040301
  3. CALCIUM CARBONATE [Concomitant]
     Dosage: 4500MG PER DAY
     Route: 048
     Dates: start: 20040301
  4. FULSTAN [Concomitant]
     Indication: HYPERPARATHYROIDISM
     Dosage: .3MCG PER DAY
     Route: 048
     Dates: start: 20040301
  5. METLIGINE [Concomitant]
     Indication: PROCEDURAL HYPOTENSION
     Route: 048
     Dates: start: 20090626
  6. PENLES [Concomitant]
     Route: 062
  7. RISUMIC [Concomitant]
     Indication: PROCEDURAL HYPOTENSION
     Route: 048
     Dates: start: 20041227

REACTIONS (4)
  - ENCEPHALOPATHY [None]
  - LOGORRHOEA [None]
  - NERVOUS SYSTEM DISORDER [None]
  - PSYCHIATRIC SYMPTOM [None]
